FAERS Safety Report 25431026 (Version 4)
Quarter: 2025Q3

REPORT INFORMATION
  Report Type: Report from Study
  Country: US (occurrence: US)
  Receive Date: 20250612
  Receipt Date: 20250709
  Transmission Date: 20251020
  Serious: Yes (Hospitalization)
  Sender: MALLINCKRODT
  Company Number: US-MALLINCKRODT-MNK202503402

PATIENT
  Age: 7 Month
  Sex: Female
  Weight: 7 kg

DRUGS (2)
  1. CORTICOTROPIN [Suspect]
     Active Substance: CORTICOTROPIN
     Indication: Infantile spasms
     Route: 030
     Dates: start: 20250527
  2. VIGABATRIN [Concomitant]
     Active Substance: VIGABATRIN

REACTIONS (4)
  - Seizure [Recovered/Resolved]
  - Injection site pain [Recovering/Resolving]
  - Irritability [Recovering/Resolving]
  - Anger [Unknown]

NARRATIVE: CASE EVENT DATE: 20250101
